FAERS Safety Report 10067690 (Version 1)
Quarter: 2014Q2

REPORT INFORMATION
  Report Type: Spontaneous
  Country: US (occurrence: None)
  Receive Date: 20140408
  Receipt Date: 20140408
  Transmission Date: 20141212
  Serious: Yes (Other)
  Sender: FDA-Public Use
  Company Number: None

PATIENT
  Age: 30 Year
  Sex: Female

DRUGS (1)
  1. CREST PRO-HEALTH CLINICAL [Suspect]

REACTIONS (8)
  - Mouth ulceration [None]
  - Gingival ulceration [None]
  - Pharyngeal ulceration [None]
  - Ageusia [None]
  - Dysgeusia [None]
  - Aphthous stomatitis [None]
  - Pain [None]
  - Drug ineffective [None]
